FAERS Safety Report 7042994-4 (Version None)
Quarter: 2010Q3

REPORT INFORMATION
  Report Type: 
  Country: None (occurrence: None)
  Receive Date: 20100929
  Receipt Date: 20100604
  Transmission Date: 20110219
  Serious: No
  Sender: FDA-Public Use
  Company Number: US-WYE-H15516210

PATIENT
  Sex: Female

DRUGS (6)
  1. PRISTIQ [Suspect]
     Dosage: 100 MG; 50 MG 1X PER 1 DAY; 50 MG 1X PER 2 DAY
  2. PRISTIQ [Suspect]
     Dosage: 100 MG; 50 MG 1X PER 1 DAY; 50 MG 1X PER 2 DAY
     Dates: start: 20090101
  3. ALBUTEROL [Suspect]
     Indication: ASTHMA
     Dosage: WHEN EVER NECESSARY (PRN)
  4. FLOVENT [Suspect]
     Indication: ASTHMA
     Dosage: 2 TIMES DAILY
  5. WELLBUTRIN [Suspect]
  6. LAMICTAL [Concomitant]

REACTIONS (7)
  - ASTHMA [None]
  - BONE PAIN [None]
  - DIARRHOEA [None]
  - DIZZINESS [None]
  - DRUG WITHDRAWAL SYNDROME [None]
  - NAUSEA [None]
  - WHEEZING [None]
